FAERS Safety Report 6357175-7 (Version None)
Quarter: 2009Q3

REPORT INFORMATION
  Report Type: 
  Country: None (occurrence: None)
  Receive Date: 20090911
  Receipt Date: 20090831
  Transmission Date: 20100115
  Serious: Yes (Other)
  Sender: FDA-Public Use
  Company Number: 2009AP003476

PATIENT
  Age: 76 Year
  Sex: Male

DRUGS (4)
  1. CITALOPRAM HYDROBROMIDE [Suspect]
     Indication: ANXIETY
     Dosage: 10 MG, QD, PO; 20 MG, QD, PO; 40 MG, QD, PO
     Route: 048
     Dates: start: 20090622
  2. CITALOPRAM HYDROBROMIDE [Suspect]
     Indication: ANXIETY
     Dosage: 10 MG, QD, PO; 20 MG, QD, PO; 40 MG, QD, PO
     Route: 048
     Dates: start: 20090729
  3. ANTIHYPERTENSIVES [Concomitant]
  4. CARDIAC THERAPY [Concomitant]

REACTIONS (8)
  - EATING DISORDER [None]
  - HERPES SIMPLEX [None]
  - LIP ULCERATION [None]
  - MOUTH ULCERATION [None]
  - NO THERAPEUTIC RESPONSE [None]
  - SPEECH DISORDER [None]
  - SWOLLEN TONGUE [None]
  - TONGUE ULCERATION [None]
